FAERS Safety Report 12864247 (Version 2)
Quarter: 2016Q4

REPORT INFORMATION
  Report Type: Report from Study
  Country: JP (occurrence: JP)
  Receive Date: 20161020
  Receipt Date: 20161208
  Transmission Date: 20170207
  Serious: Yes (Other)
  Sender: FDA-Public Use
  Company Number: JP-ALXN-A201602453AA

PATIENT

DRUGS (4)
  1. STRENSIQ [Suspect]
     Active Substance: ASFOTASE ALFA
     Indication: HYPOPHOSPHATASIA
     Dosage: 2 MG/KG, TIW
     Route: 058
     Dates: start: 20150821
  2. ONON [Concomitant]
     Active Substance: PRANLUKAST
     Indication: HYPOPHOSPHATASIA
     Dosage: 40 MG, BID
     Route: 048
  3. ONON [Concomitant]
     Active Substance: PRANLUKAST
     Dosage: 20 MG, BID
     Route: 048
     Dates: start: 20151209
  4. MUCOSAL                            /00082801/ [Concomitant]
     Indication: HYPOPHOSPHATASIA
     Dosage: 5.4 MG, TID
     Route: 048

REACTIONS (2)
  - Erythema multiforme [Recovered/Resolved]
  - Injection site reaction [Recovered/Resolved]

NARRATIVE: CASE EVENT DATE: 20160312
